FAERS Safety Report 18361977 (Version 4)
Quarter: 2020Q4

REPORT INFORMATION
  Report Type: Spontaneous
  Country: IT (occurrence: IT)
  Receive Date: 20201008
  Receipt Date: 20201202
  Transmission Date: 20210114
  Serious: Yes (Other)
  Sender: FDA-Public Use
  Company Number: NVSC2020IT271121

PATIENT
  Age: 76 Year
  Sex: Female

DRUGS (3)
  1. ATORVASTATIN CALCIUM. [Suspect]
     Active Substance: ATORVASTATIN CALCIUM
     Indication: ANGIODYSPLASIA
     Dosage: 80 MG, QD
     Route: 065
  2. ATORVASTATIN CALCIUM. [Suspect]
     Active Substance: ATORVASTATIN CALCIUM
     Indication: GASTROINTESTINAL ANGIODYSPLASIA
  3. HAEMATE FVIII/VWF [Concomitant]
     Indication: PROPHYLAXIS
     Dosage: 50 U/KG, 2 DAYS
     Route: 041

REACTIONS (2)
  - Myalgia [Unknown]
  - Off label use [Unknown]
